FAERS Safety Report 24928370 (Version 1)
Quarter: 2025Q1

REPORT INFORMATION
  Report Type: Spontaneous
  Country: US (occurrence: US)
  Receive Date: 20250205
  Receipt Date: 20250205
  Transmission Date: 20250409
  Serious: No
  Sender: ASTELLAS
  Company Number: US-ASTELLAS-2025-AER-006066

PATIENT
  Age: 54 Year
  Sex: Female

DRUGS (1)
  1. VEOZAH [Suspect]
     Active Substance: FEZOLINETANT
     Indication: Product used for unknown indication

REACTIONS (1)
  - Transaminases increased [Unknown]
